FAERS Safety Report 17621508 (Version 1)
Quarter: 2020Q2

REPORT INFORMATION
  Report Type: Spontaneous
  Country: US (occurrence: US)
  Receive Date: 20200401
  Receipt Date: 20200401
  Transmission Date: 20200713
  Serious: Yes (Hospitalization)
  Sender: FDA-Public Use
  Company Number: None

PATIENT
  Age: 56 Year
  Sex: Female

DRUGS (3)
  1. LISINOPRIL. [Concomitant]
     Active Substance: LISINOPRIL
  2. VITAMIN B12 [Concomitant]
     Active Substance: CYANOCOBALAMIN
  3. HUMIRA [Suspect]
     Active Substance: ADALIMUMAB
     Indication: PSORIASIS
     Dosage: ?          OTHER STRENGTH:40MG/0.8ML;OTHER DOSE:40MG/0.8ML;OTHER FREQUENCY:Q2WKS;?
     Route: 058
     Dates: start: 20140529

REACTIONS (1)
  - Knee operation [None]

NARRATIVE: CASE EVENT DATE: 20200401
